FAERS Safety Report 4615423-5 (Version None)
Quarter: 2005Q2

REPORT INFORMATION
  Report Type: 
  Country: None (occurrence: None)
  Receive Date: 20050311
  Receipt Date: 20041115
  Transmission Date: 20051028
  Serious: No
  Sender: FDA-Public Use
  Company Number: 2004-BP-08243BP

PATIENT
  Age: 62 Year
  Sex: Female

DRUGS (7)
  1. SPIRIVA [Suspect]
     Indication: CHRONIC OBSTRUCTIVE PULMONARY DISEASE
     Dosage: 18 MCG (18 MCG, 1 A DAY), IH
     Route: 055
     Dates: start: 20040902
  2. SPIRIVA [Suspect]
     Indication: CHRONIC OBSTRUCTIVE PULMONARY DISEASE
     Dosage: 18 MCG (18 MCG, 1 A DAY), IH
     Route: 055
     Dates: start: 20040902
  3. ALBUTEROL [Concomitant]
  4. ADVAIR DISKUS 100/50 [Concomitant]
  5. AVAPRO [Concomitant]
  6. LEVOXYL [Concomitant]
  7. CLOBETASOL PROPIONATE (CLOBETASOL PROPIONATE) [Concomitant]

REACTIONS (1)
  - DRUG INEFFECTIVE [None]
